FAERS Safety Report 8001528-8 (Version None)
Quarter: 2011Q4

REPORT INFORMATION
  Report Type: 
  Country: None (occurrence: None)
  Receive Date: 20111222
  Receipt Date: 20111219
  Transmission Date: 20120403
  Serious: Yes (Other)
  Sender: FDA-Public Use
  Company Number: JP-PFIZER INC-2011196741

PATIENT
  Age: 62 Year
  Sex: Male

DRUGS (6)
  1. LYRICA [Suspect]
     Indication: CERVICOBRACHIAL SYNDROME
     Dosage: 75 MG, 1X/DAY
     Route: 048
     Dates: start: 20110523, end: 20110527
  2. LYRICA [Suspect]
     Dosage: 150 MG, 2X/DAY
     Route: 048
     Dates: start: 20110527
  3. MUCOSTA [Concomitant]
     Indication: GASTRITIS
     Dosage: 100 MG, 2X/DAY
     Route: 048
     Dates: start: 20110527
  4. SHAKUYAKU-KANZO-TO [Concomitant]
     Dosage: 2.5 G, 3X/DAY
     Route: 048
     Dates: start: 20110714, end: 20110816
  5. CYMBALTA [Suspect]
     Indication: DEPRESSION
     Dosage: 20 MG, 1X/DAY
     Route: 048
     Dates: start: 20110701
  6. CELECOXIB [Concomitant]
     Indication: PAIN
     Dosage: 100 MG, 2X/DAY
     Route: 048
     Dates: start: 20110527

REACTIONS (2)
  - EYELID PTOSIS [None]
  - ANXIETY DISORDER [None]
